FAERS Safety Report 14818221 (Version 1)
Quarter: 2018Q2

REPORT INFORMATION
  Report Type: Spontaneous
  Country: US (occurrence: US)
  Receive Date: 20180427
  Receipt Date: 20180427
  Transmission Date: 20180711
  Serious: No
  Sender: FDA-Public Use
  Company Number: US-TEVA-2018-US-885405

PATIENT
  Age: 77 Year
  Sex: Male

DRUGS (1)
  1. FLUTICASONE W/SALMETEROL [Suspect]
     Active Substance: FLUTICASONE PROPIONATE\SALMETEROL XINAFOATE
     Indication: ASTHMA
     Dosage: DOSE STRENGTH:  113/14
     Route: 065
     Dates: start: 201712, end: 201801

REACTIONS (5)
  - Depressed mood [Unknown]
  - Lethargy [Unknown]
  - Confusional state [Unknown]
  - Drug ineffective [Unknown]
  - Sluggishness [Unknown]

NARRATIVE: CASE EVENT DATE: 201712
